FAERS Safety Report 15245276 (Version 5)
Quarter: 2019Q1

REPORT INFORMATION
  Report Type: Spontaneous
  Country: ES (occurrence: ES)
  Receive Date: 20180806
  Receipt Date: 20190122
  Transmission Date: 20190417
  Serious: Yes (Other)
  Sender: FDA-Public Use
  Company Number: ES-PFIZER INC-2018310895

PATIENT
  Age: 50 Year
  Sex: Male

DRUGS (6)
  1. DOXORUBICIN HCL [Suspect]
     Active Substance: DOXORUBICIN HYDROCHLORIDE
     Indication: METASTASES TO LUNG
  2. SORAFENIB [Suspect]
     Active Substance: SORAFENIB
     Indication: CERVIX CARCINOMA
     Dosage: 400 MG, 2X/DAY (400 MG/12 H)
  3. SORAFENIB [Suspect]
     Active Substance: SORAFENIB
     Indication: METASTASES TO THE MEDIASTINUM
  4. DOXORUBICIN HCL [Suspect]
     Active Substance: DOXORUBICIN HYDROCHLORIDE
     Indication: CERVIX CARCINOMA
     Dosage: 20 MG/M2, WEEKLY (FOR 4 WEEKS)
  5. DOXORUBICIN HCL [Suspect]
     Active Substance: DOXORUBICIN HYDROCHLORIDE
     Indication: METASTASES TO THE MEDIASTINUM
  6. SORAFENIB [Suspect]
     Active Substance: SORAFENIB
     Indication: METASTASES TO LUNG

REACTIONS (6)
  - Kidney infection [Recovering/Resolving]
  - Mucosal inflammation [Recovering/Resolving]
  - Renal failure [Recovering/Resolving]
  - Anaemia [Recovering/Resolving]
  - Hypocalcaemia [Recovering/Resolving]
  - Oesophagitis [Recovering/Resolving]
